FAERS Safety Report 6245534-2 (Version None)
Quarter: 2009Q2

REPORT INFORMATION
  Report Type: 
  Country: None (occurrence: None)
  Receive Date: 20090625
  Receipt Date: 20090619
  Transmission Date: 20091009
  Serious: No
  Sender: FDA-Public Use
  Company Number: US-B.I. PHARMACEUTICALS,INC./RIDGEFIELD-2009-BP-07631BP

PATIENT
  Sex: Male

DRUGS (4)
  1. COMBIVENT [Suspect]
     Indication: EMPHYSEMA
     Dosage: 2 PUF
     Route: 055
     Dates: start: 20010101
  2. FAMOTIDINE [Concomitant]
     Indication: GASTRIC DISORDER
     Route: 048
  3. CLONIDINE (GX) [Concomitant]
     Indication: BLOOD PRESSURE
     Route: 048
  4. ASMANEX TWISTHALER [Concomitant]
     Indication: EMPHYSEMA
     Route: 055

REACTIONS (1)
  - DRUG SCREEN POSITIVE [None]
